FAERS Safety Report 24152019 (Version 1)
Quarter: 2024Q3

REPORT INFORMATION
  Report Type: Spontaneous
  Country: US (occurrence: US)
  Receive Date: 20240730
  Receipt Date: 20240730
  Transmission Date: 20241017
  Serious: No
  Sender: SAREPTA THERAPEUTICS
  Company Number: US-SAREPTA THERAPEUTICS INC.-SRP2024-004315

PATIENT
  Age: 10 Year
  Sex: Male
  Weight: 30.7 kg

DRUGS (3)
  1. AMONDYS 45 [Suspect]
     Active Substance: CASIMERSEN
     Indication: Duchenne muscular dystrophy
     Dosage: 900 MILLIGRAM, WEEKLY
     Route: 042
     Dates: start: 2022, end: 20240130
  2. AMONDYS 45 [Suspect]
     Active Substance: CASIMERSEN
     Dosage: 900 MILLIGRAM
     Dates: start: 20240206
  3. EMFLAZA [Concomitant]
     Active Substance: DEFLAZACORT
     Indication: Product used for unknown indication
     Dosage: 102 MILLIGRAM, BIW

REACTIONS (2)
  - Viral infection [Recovered/Resolved]
  - Fatigue [Recovered/Resolved]

NARRATIVE: CASE EVENT DATE: 20240130
